FAERS Safety Report 6214850-2 (Version None)
Quarter: 2009Q2

REPORT INFORMATION
  Report Type: 
  Country: None (occurrence: None)
  Receive Date: 20090604
  Receipt Date: 20090601
  Transmission Date: 20091009
  Serious: Yes (Other)
  Sender: FDA-Public Use
  Company Number: CA-ASTRAZENECA-2009UW13949

PATIENT
  Age: 34 Year
  Sex: Male

DRUGS (1)
  1. SEROQUEL [Suspect]
     Route: 048

REACTIONS (4)
  - ASTHENIA [None]
  - KERATOCONUS [None]
  - VISION BLURRED [None]
  - VISUAL IMPAIRMENT [None]
